FAERS Safety Report 6293861-5 (Version None)
Quarter: 2009Q3

REPORT INFORMATION
  Report Type: 
  Country: None (occurrence: None)
  Receive Date: 20090730
  Receipt Date: 20090630
  Transmission Date: 20100115
  Serious: Yes (Hospitalization)
  Sender: FDA-Public Use
  Company Number: 8048700

PATIENT
  Age: 48 Year
  Sex: Female

DRUGS (1)
  1. CIMZIA [Suspect]
     Dosage: 400 MG, SC
     Route: 058
     Dates: start: 20081222

REACTIONS (2)
  - CONSTIPATION [None]
  - POST PROCEDURAL INFECTION [None]
